FAERS Safety Report 9940832 (Version 3)
Quarter: 2014Q2

REPORT INFORMATION
  Report Type: Spontaneous
  Country: US (occurrence: US)
  Receive Date: 20140303
  Receipt Date: 20140409
  Transmission Date: 20141212
  Serious: No
  Sender: FDA-Public Use
  Company Number: US-PFIZER INC-2014058271

PATIENT
  Age: 82 Year
  Sex: Female

DRUGS (2)
  1. XALATAN [Suspect]
     Indication: OCULAR HYPERTENSION
     Dosage: 1 GTT OU, DAILY (QHS)
     Route: 047
  2. LATANOPROST [Suspect]
     Indication: OCULAR HYPERTENSION
     Dosage: UNK

REACTIONS (2)
  - Intraocular pressure increased [Unknown]
  - Product substitution issue [Unknown]
